FAERS Safety Report 4923329-7 (Version None)
Quarter: 2006Q1

REPORT INFORMATION
  Report Type: 
  Country: None (occurrence: None)
  Receive Date: 20060227
  Receipt Date: 20060216
  Transmission Date: 20060701
  Serious: Yes (Death, Life-Threatening, Hospitalization, Other)
  Sender: FDA-Public Use
  Company Number: GB-JNJFOC-20060204448

PATIENT
  Sex: Female
  Weight: 68 kg

DRUGS (8)
  1. REMICADE [Suspect]
     Indication: RHEUMATOID ARTHRITIS
     Route: 042
  2. METHOTREXATE [Concomitant]
     Route: 065
  3. CO-DYDRAMOL [Concomitant]
     Route: 065
  4. CO-DYDRAMOL [Concomitant]
     Route: 065
  5. FELDENE [Concomitant]
     Route: 065
  6. FERROUS SULFATE TAB [Concomitant]
     Route: 065
  7. FOLIC ACID [Concomitant]
     Route: 065
  8. MISOPROSTOL [Concomitant]
     Route: 065

REACTIONS (2)
  - RUPTURED CEREBRAL ANEURYSM [None]
  - SUBARACHNOID HAEMORRHAGE [None]
